FAERS Safety Report 12502887 (Version 1)
Quarter: 2016Q2

REPORT INFORMATION
  Report Type: Spontaneous
  Country: CL (occurrence: CL)
  Receive Date: 20160628
  Receipt Date: 20160628
  Transmission Date: 20160815
  Serious: Yes (Death, Hospitalization, Other)
  Sender: FDA-Public Use
  Company Number: CL-STRIDES ARCOLAB LIMITED-2016SP008418

PATIENT

DRUGS (3)
  1. MYCOPHENOLATE MOFETIL. [Suspect]
     Active Substance: MYCOPHENOLATE MOFETIL
     Indication: IMMUNOSUPPRESSION
     Dosage: 1.5 G/DAY
  2. TACROLIMUS. [Suspect]
     Active Substance: TACROLIMUS
     Indication: IMMUNOSUPPRESSION
     Dosage: 9 MG/DAY
  3. PREDNISOLONE. [Suspect]
     Active Substance: PREDNISOLONE
     Indication: IMMUNOSUPPRESSION
     Dosage: 10 MG/DAY

REACTIONS (13)
  - Seizure [Unknown]
  - Leukocytosis [Unknown]
  - Hyponatraemia [Unknown]
  - Altered state of consciousness [Unknown]
  - Septic shock [Fatal]
  - Disorientation [Unknown]
  - Sluggishness [Unknown]
  - Somnolence [Unknown]
  - Metabolic disorder [Unknown]
  - Meningitis cryptococcal [Unknown]
  - Sinus headache [Unknown]
  - Headache [Unknown]
  - Pyrexia [Unknown]
